FAERS Safety Report 10752213 (Version 3)
Quarter: 2016Q2

REPORT INFORMATION
  Report Type: Report from Study
  Country: US (occurrence: US)
  Receive Date: 20150130
  Receipt Date: 20160615
  Transmission Date: 20160815
  Serious: Yes (Death, Hospitalization, Other)
  Sender: FDA-Public Use
  Company Number: US-ARIAD-2014US003715

PATIENT

DRUGS (3)
  1. DASATINIB [Suspect]
     Active Substance: DASATINIB
     Indication: CHRONIC MYELOID LEUKAEMIA
     Dosage: UNK
  2. ICLUSIG [Suspect]
     Active Substance: PONATINIB
     Indication: CHRONIC MYELOID LEUKAEMIA
     Dosage: 15 MG, QD
     Route: 048
     Dates: start: 20140314
  3. METOCLOPRAMIDE. [Concomitant]
     Active Substance: METOCLOPRAMIDE
     Indication: PRODUCT USED FOR UNKNOWN INDICATION
     Dosage: UNK

REACTIONS (15)
  - Clostridium difficile infection [Not Recovered/Not Resolved]
  - Nausea [Unknown]
  - Diarrhoea [Unknown]
  - Sinus headache [Fatal]
  - Systemic inflammatory response syndrome [Unknown]
  - Cardiac failure congestive [Unknown]
  - Vomiting [Unknown]
  - Haemoglobin decreased [Recovering/Resolving]
  - Mucormycosis [Fatal]
  - Aortic arteriosclerosis [Unknown]
  - Vasculitis [Unknown]
  - Atrial fibrillation [Unknown]
  - Pericarditis [Unknown]
  - Sciatica [Unknown]
  - Back pain [Unknown]
